FAERS Safety Report 4285479-0 (Version None)
Quarter: 2004Q1

REPORT INFORMATION
  Report Type: 
  Country: None (occurrence: None)
  Receive Date: 20040202
  Receipt Date: 20040126
  Transmission Date: 20041129
  Serious: Yes (Death, Hospitalization)
  Sender: FDA-Public Use
  Company Number: KDL064900

PATIENT
  Age: 62 Year
  Sex: Male

DRUGS (1)
  1. PROCRIT [Suspect]
     Indication: PRE-EXISTING DISEASE
     Dosage: 1 IN 1 DAYS
     Dates: start: 20010101

REACTIONS (3)
  - COAGULOPATHY [None]
  - HAEMORRHAGE [None]
  - LEUKAEMIA [None]
